FAERS Safety Report 9925168 (Version 1)
Quarter: 2014Q1

REPORT INFORMATION
  Report Type: Spontaneous
  Country: US (occurrence: None)
  Receive Date: 20140220
  Receipt Date: 20140220
  Transmission Date: 20141002
  Serious: No
  Sender: FDA-Public Use
  Company Number: 1713747-2014-99908

PATIENT
  Sex: Male

DRUGS (2)
  1. DELFLEX WITH DEXTROSE 2.5% LOW MAGNESIUM LOW CALCIUM [Suspect]
     Route: 033
     Dates: start: 20140129
  2. LIBERTY CYCLER CASSETTE AND LIBERTY CYCLER [Concomitant]

REACTIONS (1)
  - Haemoptysis [None]
